FAERS Safety Report 14641921 (Version 1)
Quarter: 2018Q1

REPORT INFORMATION
  Report Type: Spontaneous
  Country: US (occurrence: US)
  Receive Date: 20180315
  Receipt Date: 20180315
  Transmission Date: 20180509
  Serious: No
  Sender: FDA-Public Use
  Company Number: US-BIOGEN-2018BI00540253

PATIENT
  Sex: Female

DRUGS (1)
  1. TYSABRI [Suspect]
     Active Substance: NATALIZUMAB
     Indication: MULTIPLE SCLEROSIS
     Dosage: INFUSED IOVER AN HOUR
     Route: 042
     Dates: start: 20170824, end: 20171011

REACTIONS (2)
  - Hypersensitivity [Recovered/Resolved]
  - Malaise [Not Recovered/Not Resolved]
